FAERS Safety Report 15458910 (Version 1)
Quarter: 2018Q4

REPORT INFORMATION
  Report Type: Spontaneous
  Country: US (occurrence: US)
  Receive Date: 20181003
  Receipt Date: 20181003
  Transmission Date: 20190204
  Serious: No
  Sender: FDA-Public Use
  Company Number: US-ENDO PHARMACEUTICALS INC-2018-025857

PATIENT
  Age: 80 Year
  Sex: Female
  Weight: 54.42 kg

DRUGS (3)
  1. VALSTAR [Suspect]
     Active Substance: VALRUBICIN
     Indication: BLADDER CANCER
     Dosage: UNK UNKNOWN, FIRST INSTILLATION
     Route: 043
     Dates: start: 20180228
  2. VALSTAR [Suspect]
     Active Substance: VALRUBICIN
     Dosage: UNK UNKNOWN, SECOND INSTILLATION
     Route: 043
     Dates: start: 20180307
  3. COUMADIN [Concomitant]
     Active Substance: WARFARIN SODIUM
     Indication: ATRIAL FIBRILLATION

REACTIONS (5)
  - Urinary incontinence [Unknown]
  - Cystitis [Unknown]
  - Bladder instillation procedure [Unknown]
  - Dysuria [Unknown]
  - Underdose [Unknown]

NARRATIVE: CASE EVENT DATE: 20180228
